FAERS Safety Report 9293926 (Version 1)
Quarter: 2013Q1

REPORT INFORMATION
  Report Type: Spontaneous
  Country: US (occurrence: None)
  Receive Date: 20121218
  Receipt Date: 20121218
  Transmission Date: 20140127
  Serious: Yes (Other)
  Sender: FDA-Public Use
  Company Number: PHEH2012US014142

PATIENT
  Sex: Female
  Weight: 55.8 kg

DRUGS (1)
  1. FEMARA [Suspect]
     Indication: INFLAMMATORY CARCINOMA OF THE BREAST
     Route: 048
     Dates: start: 20101101, end: 20110101

REACTIONS (3)
  - Neoplasm [None]
  - Pathological fracture [None]
  - Malignant neoplasm progression [None]
